FAERS Safety Report 10299461 (Version 2)
Quarter: 2014Q3

REPORT INFORMATION
  Report Type: Spontaneous
  Country: US (occurrence: US)
  Receive Date: 20140711
  Receipt Date: 20140815
  Transmission Date: 20150326
  Serious: Yes (Hospitalization)
  Sender: FDA-Public Use
  Company Number: US-BAYER-2014-102786

PATIENT
  Age: 27 Year
  Sex: Female
  Weight: 66.21 kg

DRUGS (5)
  1. XANAX [Concomitant]
     Active Substance: ALPRAZOLAM
  2. ULTRAM [Concomitant]
     Active Substance: TRAMADOL HYDROCHLORIDE
  3. IMITREX [Suspect]
     Active Substance: SUMATRIPTAN\SUMATRIPTAN SUCCINATE
  4. MIRENA [Suspect]
     Active Substance: LEVONORGESTREL
     Indication: CONTRACEPTION
     Dosage: 20 MCG/24HR, CONT
     Route: 015
     Dates: start: 20090709, end: 20121219
  5. TYLENOL WITH CODEIN #4 [Concomitant]

REACTIONS (5)
  - Pain [None]
  - Emotional distress [None]
  - Intra-uterine contraceptive device removal [None]
  - Device difficult to use [None]
  - Injury [None]

NARRATIVE: CASE EVENT DATE: 20121206
